FAERS Safety Report 10006265 (Version 1)
Quarter: 2014Q1

REPORT INFORMATION
  Report Type: Spontaneous
  Country: US (occurrence: US)
  Receive Date: 20140313
  Receipt Date: 20140313
  Transmission Date: 20141002
  Serious: Yes (Other)
  Sender: FDA-Public Use
  Company Number: US-BAYER-2014-037151

PATIENT
  Age: 42 Year
  Sex: Female
  Weight: 74.83 kg

DRUGS (4)
  1. YAZ [Suspect]
  2. YASMIN [Suspect]
  3. ACETAMINOPHEN W/HYDROCODONE [Concomitant]
  4. CIPROFLOXACIN [Concomitant]

REACTIONS (1)
  - Pulmonary embolism [Recovering/Resolving]
